FAERS Safety Report 13317191 (Version 1)
Quarter: 2017Q1

REPORT INFORMATION
  Report Type: Spontaneous
  Country: RS (occurrence: RS)
  Receive Date: 20170310
  Receipt Date: 20170310
  Transmission Date: 20170428
  Serious: Yes (Death, Other)
  Sender: FDA-Public Use
  Company Number: RS-ALKEM LABORATORIES LIMITED-RS-ALKEM-2017-00087

PATIENT
  Age: 26 Year
  Sex: Female

DRUGS (8)
  1. HALOPERIDOL. [Suspect]
     Active Substance: HALOPERIDOL
     Indication: BRIEF PSYCHOTIC DISORDER, WITH POSTPARTUM ONSET
     Dosage: UNKNOWN
  2. DIAZEPAM. [Suspect]
     Active Substance: DIAZEPAM
     Indication: BRIEF PSYCHOTIC DISORDER, WITH POSTPARTUM ONSET
     Dosage: UNKNOWN
  3. RISPERIDONE. [Suspect]
     Active Substance: RISPERIDONE
     Indication: BRIEF PSYCHOTIC DISORDER, WITH POSTPARTUM ONSET
     Dosage: UNKNOWN
  4. CLOZAPINE. [Suspect]
     Active Substance: CLOZAPINE
     Indication: BRIEF PSYCHOTIC DISORDER, WITH POSTPARTUM ONSET
     Dosage: UNKNOWN
  5. LORAZEPAM. [Suspect]
     Active Substance: LORAZEPAM
     Indication: BRIEF PSYCHOTIC DISORDER, WITH POSTPARTUM ONSET
     Dosage: UNKNOWN
  6. CLOZAPINE. [Suspect]
     Active Substance: CLOZAPINE
     Dosage: UNKNOWN
  7. LAMOTRIGINE. [Suspect]
     Active Substance: LAMOTRIGINE
     Indication: BRIEF PSYCHOTIC DISORDER, WITH POSTPARTUM ONSET
     Dosage: UNKNOWN
  8. LAMOTRIGINE. [Suspect]
     Active Substance: LAMOTRIGINE
     Dosage: UNKNOWN

REACTIONS (2)
  - Pulmonary embolism [Fatal]
  - Venous thrombosis limb [Unknown]
